FAERS Safety Report 5838096-2 (Version None)
Quarter: 2008Q3

REPORT INFORMATION
  Report Type: 
  Country: None (occurrence: None)
  Receive Date: 20080808
  Receipt Date: 20080729
  Transmission Date: 20090109
  Serious: Yes (Other)
  Sender: FDA-Public Use
  Company Number: US-ROCHE-563763

PATIENT
  Sex: Male
  Weight: 96.6 kg

DRUGS (2)
  1. PEG-INTERFERON A-2A (RO 25-8310) [Suspect]
     Dosage: FORM: PRE-FILLED SYRINGE (PFS) PATIENT IN WEEK 30
     Route: 065
     Dates: start: 20080105
  2. RIBAVIRIN [Suspect]
     Dosage: PATIENT IN WEEK 30
     Route: 065
     Dates: start: 20080105

REACTIONS (6)
  - COUGH [None]
  - DYSPNOEA [None]
  - FATIGUE [None]
  - INGUINAL HERNIA [None]
  - PAIN [None]
  - WHITE BLOOD CELL COUNT DECREASED [None]
